FAERS Safety Report 5298442-8 (Version None)
Quarter: 2007Q2

REPORT INFORMATION
  Report Type: 
  Country: None (occurrence: None)
  Receive Date: 20070409
  Receipt Date: 20070329
  Transmission Date: 20071010
  Serious: Yes (Other)
  Sender: FDA-Public Use
  Company Number: 2007SP006068

PATIENT
  Age: 50 Year
  Sex: Male

DRUGS (5)
  1. TEMOZOLOMIDE (S-P) [Suspect]
     Indication: GLIOBLASTOMA
     Dosage: SEE IMAGE
  2. DEXAMETHASONE 0.5MG TAB [Suspect]
     Indication: GLIOBLASTOMA
     Dosage: SEE IMAGE
  3. TOLTERODINE [Concomitant]
  4. LEVETIRACETAM [Concomitant]
  5. ATOVAQUONE [Concomitant]

REACTIONS (6)
  - HEMIPARESIS [None]
  - HEPATITIS B [None]
  - HEPATOCELLULAR DAMAGE [None]
  - HEPATOMEGALY [None]
  - METASTASES TO SPINE [None]
  - NERVOUS SYSTEM DISORDER [None]
